FAERS Safety Report 18895448 (Version 1)
Quarter: 2021Q1

REPORT INFORMATION
  Report Type: Report from Study
  Country: CN (occurrence: CN)
  Receive Date: 20210215
  Receipt Date: 20210215
  Transmission Date: 20210420
  Serious: Yes (Hospitalization)
  Sender: FDA-Public Use
  Company Number: CN-SA-2021SA029986

PATIENT
  Age: 66 Year
  Sex: Male
  Weight: 51.5 kg

DRUGS (6)
  1. OXALIPLATIN. [Suspect]
     Active Substance: OXALIPLATIN
     Dosage: 221 MG, QCY
     Route: 042
     Dates: start: 20201204, end: 20201204
  2. GIMERACIL;OTERACIL POTASSIUM;TEGAFUR [Suspect]
     Active Substance: GIMERACIL\OTERACIL\TEGAFUR
     Indication: ADENOCARCINOMA GASTRIC
     Dosage: 60 MG, BID
     Route: 048
     Dates: start: 20210119, end: 20210119
  3. OXALIPLATIN. [Suspect]
     Active Substance: OXALIPLATIN
     Indication: ADENOCARCINOMA GASTRIC
     Dosage: 221 MG, QCY
     Route: 042
     Dates: start: 20210119, end: 20210119
  4. OXALIPLATIN. [Suspect]
     Active Substance: OXALIPLATIN
     Dosage: 221 MG, QCY
     Route: 042
     Dates: start: 20201225, end: 20201225
  5. GIMERACIL;OTERACIL POTASSIUM;TEGAFUR [Suspect]
     Active Substance: GIMERACIL\OTERACIL\TEGAFUR
     Dosage: 60 MG, BID
     Route: 048
     Dates: start: 20201225, end: 20201225
  6. GIMERACIL;OTERACIL POTASSIUM;TEGAFUR [Suspect]
     Active Substance: GIMERACIL\OTERACIL\TEGAFUR
     Dosage: 60 MG, BID
     Route: 048
     Dates: start: 20201204, end: 20201204

REACTIONS (3)
  - Malnutrition [Not Recovered/Not Resolved]
  - Abdominal pain upper [Not Recovered/Not Resolved]
  - Fatigue [Not Recovered/Not Resolved]

NARRATIVE: CASE EVENT DATE: 20210125
